FAERS Safety Report 4602549-5 (Version None)
Quarter: 2005Q1

REPORT INFORMATION
  Report Type: 
  Country: None (occurrence: None)
  Receive Date: 20050307
  Receipt Date: 20050221
  Transmission Date: 20050727
  Serious: Yes (Hospitalization, Other)
  Sender: FDA-Public Use
  Company Number: 2005035503

PATIENT
  Sex: Male

DRUGS (3)
  1. ZARONTIN [Suspect]
     Indication: EPILEPSY
     Dosage: PLACENTAL
     Route: 064
  2. VALPROATE SODIUM [Suspect]
     Indication: EPILEPSY
     Dosage: PLACENTAL
     Route: 064
  3. FOLIC ACID [Concomitant]

REACTIONS (15)
  - CAESAREAN SECTION [None]
  - CONGENITAL MUSCULOSKELETAL ANOMALY [None]
  - CORNEAL DISORDER [None]
  - DEVELOPMENTAL DELAY [None]
  - DRUG EXPOSURE DURING PREGNANCY [None]
  - FACIAL DYSMORPHISM [None]
  - FOETAL VALPROATE SYNDROME [None]
  - GAZE PALSY [None]
  - HYPOTONIA NEONATAL [None]
  - JAUNDICE [None]
  - NEONATAL DISORDER [None]
  - NEONATAL RESPIRATORY DISTRESS SYNDROME [None]
  - PATENT DUCTUS ARTERIOSUS [None]
  - PREMATURE BABY [None]
  - TALIPES [None]
